FAERS Safety Report 18118634 (Version 1)
Quarter: 2020Q3

REPORT INFORMATION
  Report Type: Spontaneous
  Country: US (occurrence: US)
  Receive Date: 20200806
  Receipt Date: 20200806
  Transmission Date: 20201103
  Serious: No
  Sender: FDA-Public Use
  Company Number: US-PFIZER INC-2020127075

PATIENT
  Age: 29 Year
  Sex: Female
  Weight: 61.22 kg

DRUGS (2)
  1. LUPRON DEPOT [Concomitant]
     Active Substance: LEUPROLIDE ACETATE
     Dosage: 3.75 MG, UNK
  2. IBRANCE [Suspect]
     Active Substance: PALBOCICLIB
     Indication: BREAST CANCER FEMALE
     Dosage: 125 MG, CYCLIC (1 DAILY FOR 21 DAYS)
     Route: 048
     Dates: start: 20200116, end: 2020

REACTIONS (1)
  - Blood count abnormal [Unknown]

NARRATIVE: CASE EVENT DATE: 2020
